FAERS Safety Report 6403675-0 (Version None)
Quarter: 2009Q4

REPORT INFORMATION
  Report Type: 
  Country: None (occurrence: None)
  Receive Date: 20091016
  Receipt Date: 20090928
  Transmission Date: 20100525
  Serious: No
  Sender: FDA-Public Use
  Company Number: US-BAYER-200934476NA

PATIENT
  Age: 19 Year
  Sex: Female
  Weight: 53 kg

DRUGS (2)
  1. YAZ [Suspect]
     Indication: ACNE
     Dates: start: 20080101, end: 20081101
  2. YAZ [Suspect]
     Dates: start: 20090701, end: 20090901

REACTIONS (1)
  - ALOPECIA [None]
